FAERS Safety Report 24651786 (Version 1)
Quarter: 2024Q4

REPORT INFORMATION
  Report Type: Spontaneous
  Country: CN (occurrence: CN)
  Receive Date: 20241122
  Receipt Date: 20241122
  Transmission Date: 20250115
  Serious: Yes (Hospitalization, Other)
  Sender: SANOFI AVENTIS
  Company Number: CN-SA-2024SA339357

PATIENT
  Age: 70 Year
  Sex: Female
  Weight: 51 kg

DRUGS (2)
  1. CLOPIDOGREL BISULFATE [Suspect]
     Active Substance: CLOPIDOGREL BISULFATE
     Indication: Aneurysm repair
     Dosage: 75.000MG QD
     Route: 048
     Dates: start: 20241018, end: 20241112
  2. ASPIRIN [Suspect]
     Active Substance: ASPIRIN
     Indication: Aneurysm repair
     Dosage: 0.1 G, QD
     Route: 048
     Dates: start: 20241018, end: 20241112

REACTIONS (10)
  - Hemiplegia [Unknown]
  - Pneumonia aspiration [Unknown]
  - Arteriosclerosis coronary artery [Unknown]
  - Arterial stenosis [Unknown]
  - Carotid artery stenosis [Unknown]
  - Hypertension [Unknown]
  - Asthenia [Unknown]
  - Upper gastrointestinal haemorrhage [Recovering/Resolving]
  - Faeces discoloured [Unknown]
  - Diarrhoea [Unknown]

NARRATIVE: CASE EVENT DATE: 20241101
